FAERS Safety Report 14997888 (Version 1)
Quarter: 2018Q2

REPORT INFORMATION
  Report Type: Spontaneous
  Country: US (occurrence: US)
  Receive Date: 20180611
  Receipt Date: 20180611
  Transmission Date: 20180711
  Serious: No
  Sender: FDA-Public Use
  Company Number: US-FOUNDATIONCONSUMERHC-2018-US-007172

PATIENT
  Age: 18 Year
  Sex: Female
  Weight: 72.12 kg

DRUGS (2)
  1. PLAN B ONE-STEP [Suspect]
     Active Substance: LEVONORGESTREL
     Indication: POST COITAL CONTRACEPTION
     Dosage: 1.5MG
     Route: 048
     Dates: start: 20180322, end: 20180322
  2. VITAMIN UNSPECIFIED [Concomitant]
     Dosage: DAILY AS DIRECTED
     Route: 048

REACTIONS (7)
  - Menstrual disorder [Unknown]
  - Abdominal distension [Recovering/Resolving]
  - Vaginal haemorrhage [Not Recovered/Not Resolved]
  - Abdominal pain [Unknown]
  - Polymenorrhoea [Unknown]
  - Breast tenderness [Recovered/Resolved]
  - Vaginal haemorrhage [Recovered/Resolved]

NARRATIVE: CASE EVENT DATE: 201803
